FAERS Safety Report 15999325 (Version 3)
Quarter: 2019Q2

REPORT INFORMATION
  Report Type: Spontaneous
  Country: US (occurrence: US)
  Receive Date: 20190225
  Receipt Date: 20190417
  Transmission Date: 20190711
  Serious: No
  Sender: FDA-Public Use
  Company Number: US-PFIZER INC-2019078650

PATIENT
  Age: 72 Year
  Sex: Male

DRUGS (1)
  1. EUCRISA [Suspect]
     Active Substance: CRISABOROLE
     Indication: ECZEMA
     Dosage: UNK, TWICE A DAY
     Dates: start: 201901

REACTIONS (3)
  - Product complaint [Unknown]
  - Poor quality product administered [Unknown]
  - Drug ineffective [Not Recovered/Not Resolved]
